FAERS Safety Report 20819387 (Version 1)
Quarter: 2022Q2

REPORT INFORMATION
  Report Type: Spontaneous
  Country: US (occurrence: None)
  Receive Date: 20220511
  Receipt Date: 20220511
  Transmission Date: 20220721
  Serious: Yes (Other)
  Sender: FDA-Public Use
  Company Number: None

PATIENT
  Age: 61 Year
  Sex: Female
  Weight: 74.25 kg

DRUGS (7)
  1. TRULICITY [Suspect]
     Active Substance: DULAGLUTIDE
     Indication: Diabetes mellitus
     Dosage: OTHER FREQUENCY : ONCE A WEEK;?OTHER ROUTE : INJECTD INTO THE ABDOMIN;?
     Route: 050
     Dates: start: 20220414, end: 20220504
  2. METFORMIN [Concomitant]
     Active Substance: METFORMIN HYDROCHLORIDE
  3. JARDIANCE [Concomitant]
     Active Substance: EMPAGLIFLOZIN
  4. LISINOPRIL [Concomitant]
     Active Substance: LISINOPRIL
  5. lovistatin [Concomitant]
  6. ASPIRIN [Concomitant]
     Active Substance: ASPIRIN
  7. multivitamin [Concomitant]

REACTIONS (8)
  - Eructation [None]
  - Urticaria [None]
  - Abdominal distension [None]
  - Fatigue [None]
  - Diarrhoea [None]
  - Dizziness [None]
  - Hypersomnia [None]
  - Dysstasia [None]

NARRATIVE: CASE EVENT DATE: 20220508
